FAERS Safety Report 20896384 (Version 1)
Quarter: 2022Q2

REPORT INFORMATION
  Report Type: Spontaneous
  Country: GB (occurrence: GB)
  Receive Date: 20220531
  Receipt Date: 20220531
  Transmission Date: 20220721
  Serious: Yes (Disabling, Other)
  Sender: FDA-Public Use
  Company Number: None

PATIENT
  Age: 19 Year
  Sex: Female
  Weight: 86 kg

DRUGS (7)
  1. FLUOXETINE [Suspect]
     Active Substance: FLUOXETINE HYDROCHLORIDE
     Indication: Ill-defined disorder
     Dosage: UNK
     Dates: start: 20220510, end: 20220524
  2. BETNOVATE [Concomitant]
     Active Substance: BETAMETHASONE
     Indication: Ill-defined disorder
     Dosage: UNK, QD(APPLY TO THE AFFECTED AREA ONCE OR TWICE DAILY)
     Dates: start: 20210520
  3. CALCIPOTRIENE [Concomitant]
     Active Substance: CALCIPOTRIENE
     Indication: Ill-defined disorder
     Dosage: UNK, BID(APPLY THICKLY TWICE DAILY (MAX 100G/WEEK) FOR P)
     Dates: start: 20210520
  4. FLUOXETINE [Concomitant]
     Active Substance: FLUOXETINE HYDROCHLORIDE
     Indication: Ill-defined disorder
     Dosage: 1 DOSAGE FORM, AM(TAKE ONE CAPSULE IN THE MORNING)
     Dates: start: 20220429, end: 20220524
  5. NAPROXEN [Concomitant]
     Active Substance: NAPROXEN
     Indication: Ill-defined disorder
     Dosage: 1 DOSAGE FORM, BID(ONE TABLET TO BE TAKEN TWICE A DAY  FOR PAIN RE)
     Dates: start: 20210318
  6. OMEPRAZOLE [Concomitant]
     Active Substance: OMEPRAZOLE
     Indication: Ill-defined disorder
     Dosage: 1 DOSAGE FORM, QD(ONE CAPSULE TO BE TAKEN ONCE A DAY TO REDUCE ST.)
     Dates: start: 20210318
  7. SERTRALINE [Concomitant]
     Active Substance: SERTRALINE HYDROCHLORIDE
     Indication: Ill-defined disorder
     Dosage: UNK,QD(TAKE HALF A TABLET DAILY FOR ANXIETY/DEPRESSION)
     Dates: start: 20220524

REACTIONS (2)
  - Suicidal ideation [Recovering/Resolving]
  - Intentional self-injury [Not Recovered/Not Resolved]

NARRATIVE: CASE EVENT DATE: 20220510
